FAERS Safety Report 4384605-2 (Version None)
Quarter: 2004Q2

REPORT INFORMATION
  Report Type: 
  Country: None (occurrence: None)
  Receive Date: 20040625
  Receipt Date: 20040527
  Transmission Date: 20050107
  Serious: Yes (Other)
  Sender: FDA-Public Use
  Company Number: PHBS2004BE07219

PATIENT
  Age: 21 Year
  Sex: Female

DRUGS (4)
  1. SANDIMMUNE [Suspect]
     Indication: DERMATITIS ATOPIC
     Dosage: 50 MG, BID
     Route: 048
     Dates: start: 20040426
  2. SANDIMMUNE [Suspect]
     Dosage: 100 MG AND 50 MG/DAY
     Route: 048
  3. YASMIN [Concomitant]
  4. XYZALL [Concomitant]

REACTIONS (2)
  - ASTHMA [None]
  - WHEEZING [None]
